FAERS Safety Report 5708714-8 (Version None)
Quarter: 2008Q2

REPORT INFORMATION
  Report Type: 
  Country: None (occurrence: None)
  Receive Date: 20080417
  Receipt Date: 20080410
  Transmission Date: 20081010
  Serious: Yes (Hospitalization)
  Sender: FDA-Public Use
  Company Number: IT-ABBOTT-08P-083-0446563-00

PATIENT
  Age: 27 Year
  Sex: Female

DRUGS (7)
  1. VALPROATE SODIUM [Suspect]
     Indication: AGITATION
     Dosage: NOT REPORTED
     Dates: start: 20040101
  2. VALPROATE SODIUM [Suspect]
     Indication: PSYCHOTIC DISORDER
  3. CARBAMAZEPINE [Suspect]
     Indication: AGITATION
     Dosage: NOT REPORTED
     Dates: start: 20040101
  4. CARBAMAZEPINE [Suspect]
     Indication: PSYCHOTIC DISORDER
  5. LEVOSULPIRIDE [Concomitant]
     Indication: AGITATION
     Dosage: NOT REPORTED
     Dates: start: 20040101
  6. LEVOSULPIRIDE [Concomitant]
     Indication: PSYCHOTIC DISORDER
  7. L-THYROXINE [Concomitant]
     Indication: HYPOTHYROIDISM

REACTIONS (1)
  - MYXOEDEMA COMA [None]
